FAERS Safety Report 25339338 (Version 2)
Quarter: 2025Q2

REPORT INFORMATION
  Report Type: Report from Study
  Country: US (occurrence: US)
  Receive Date: 20250521
  Receipt Date: 20250527
  Transmission Date: 20250716
  Serious: No
  Sender: SANDOZ
  Company Number: US-SANDOZ-SDZ2025US032657

PATIENT
  Age: 14 Year
  Sex: Male

DRUGS (2)
  1. OMNITROPE [Suspect]
     Active Substance: SOMATROPIN
     Indication: Hypopituitarism
     Dosage: 1.9 MG, QD 10 MG / 1.5 ML
     Route: 058
     Dates: start: 202505
  2. OMNITROPE [Suspect]
     Active Substance: SOMATROPIN
     Indication: Hypopituitarism
     Dosage: 1.9 MG, QD 10 MG / 1.5 ML
     Route: 058
     Dates: start: 202505

REACTIONS (4)
  - Constipation [Unknown]
  - Abdominal pain upper [Unknown]
  - Injection site discharge [Not Recovered/Not Resolved]
  - Injection site pain [Unknown]

NARRATIVE: CASE EVENT DATE: 20250501
